FAERS Safety Report 19585053 (Version 4)
Quarter: 2021Q4

REPORT INFORMATION
  Report Type: Report from Study
  Country: TR (occurrence: TR)
  Receive Date: 20210720
  Receipt Date: 20211028
  Transmission Date: 20220303
  Serious: Yes (Death, Life-Threatening, Hospitalization)
  Sender: FDA-Public Use
  Company Number: TR-PFIZER INC-2021882397

PATIENT
  Age: 74 Year
  Sex: Male
  Weight: 91 kg

DRUGS (3)
  1. CARBOPLATIN [Suspect]
     Active Substance: CARBOPLATIN
     Indication: Non-small cell lung cancer
     Dosage: AUC 5, EVERY 3 WEEKS
     Route: 042
     Dates: start: 20210625, end: 20210625
  2. PEMETREXED [Suspect]
     Active Substance: PEMETREXED
     Indication: Non-small cell lung cancer
     Dosage: 500 MG/M2, EVERY 3 WEEKS
     Route: 042
     Dates: start: 20210625, end: 20210625
  3. INVESTIGATIONAL PRODUCT [Suspect]
     Active Substance: INVESTIGATIONAL PRODUCT
     Indication: Non-small cell lung cancer
     Dosage: UNK, EVERY 3 WEEKS, INFUSION
     Route: 042
     Dates: start: 20210625, end: 20210625

REACTIONS (1)
  - Diabetes insipidus [Fatal]

NARRATIVE: CASE EVENT DATE: 20210701
